FAERS Safety Report 8487430-6 (Version None)
Quarter: 2012Q2

REPORT INFORMATION
  Report Type: 
  Country: None (occurrence: None)
  Receive Date: 20120628
  Receipt Date: 20120628
  Transmission Date: 20120825
  Serious: Yes (Hospitalization)
  Sender: FDA-Public Use
  Company Number: None

PATIENT
  Age: 64 Year
  Sex: Female
  Weight: 75.9 kg

DRUGS (1)
  1. INCIVEK [Suspect]
     Dosage: 750 MG, TID, ORAL
     Route: 048
     Dates: start: 20120429

REACTIONS (2)
  - SWELLING [None]
  - RASH [None]
